FAERS Safety Report 5675199-X (Version None)
Quarter: 2008Q2

REPORT INFORMATION
  Report Type: 
  Country: None (occurrence: None)
  Receive Date: 20080303
  Receipt Date: 20070918
  Transmission Date: 20081010
  Serious: Yes (Other)
  Sender: FDA-Public Use
  Company Number: RB-8059-2007

PATIENT
  Age: 28 Year
  Sex: Female

DRUGS (2)
  1. SUBOXONE [Suspect]
     Indication: DRUG DEPENDENCE
     Dosage: 10 MG SUBLINGUAL
     Route: 060
     Dates: start: 20061115, end: 20070911
  2. SUBUTEX [Suspect]
     Indication: DRUG DEPENDENCE
     Dosage: 2 MG BID SUBLINGUAL
     Route: 060
     Dates: start: 20070912

REACTIONS (2)
  - ABORTION INDUCED [None]
  - DRUG EXPOSURE DURING PREGNANCY [None]
